FAERS Safety Report 6054256-2 (Version None)
Quarter: 2009Q1

REPORT INFORMATION
  Report Type: 
  Country: None (occurrence: None)
  Receive Date: 20090127
  Receipt Date: 20090121
  Transmission Date: 20090719
  Serious: Yes (Other)
  Sender: FDA-Public Use
  Company Number: US-JNJCH-2009001938

PATIENT
  Age: 11 Year
  Sex: Female
  Weight: 31.8 kg

DRUGS (4)
  1. ZYRTEC [Suspect]
     Indication: INTENTIONAL SELF-INJURY
     Route: 048
     Dates: start: 20090120, end: 20090120
  2. COUGH AND COLD PREPARATIONS [Suspect]
     Indication: INTENTIONAL SELF-INJURY
     Dosage: TEXT:UNSPECIFIED
     Route: 048
  3. VITAMINS [Suspect]
     Indication: INTENTIONAL SELF-INJURY
     Dosage: TEXT:UNSPECIFIED
     Route: 048
  4. PROZAC [Concomitant]
     Indication: ANXIETY
     Dosage: TEXT:40 MG 1 PER DAY
     Route: 065

REACTIONS (2)
  - DIZZINESS [None]
  - INTENTIONAL OVERDOSE [None]
